FAERS Safety Report 8638460 (Version 2)
Quarter: 2014Q1

REPORT INFORMATION
  Report Type: Spontaneous
  Country: BR (occurrence: BR)
  Receive Date: 20120627
  Receipt Date: 20140207
  Transmission Date: 20141002
  Serious: Yes (Other)
  Sender: FDA-Public Use
  Company Number: BR-ROCHE-780156

PATIENT
  Sex: Male
  Weight: 72 kg

DRUGS (13)
  1. RIVOTRIL [Suspect]
     Indication: PANIC DISORDER
     Dosage: DOSE AND FREQUENCY: 1 TABLET AT NIGHT (CONSUMER ALSO USES 2 TABLETS WHEN HE IS MORE TENSE).
     Route: 065
  2. RIVOTRIL [Suspect]
     Indication: ANXIETY
     Route: 065
  3. RIVOTRIL [Suspect]
     Indication: EPILEPSY
  4. RIVOTRIL [Suspect]
     Indication: RESTLESS LEGS SYNDROME
  5. RIVOTRIL [Suspect]
     Indication: BALANCE DISORDER
  6. RIVOTRIL [Suspect]
     Indication: BURNING MOUTH SYNDROME
  7. RIVOTRIL [Suspect]
     Indication: MAJOR DEPRESSION
  8. RIVOTRIL [Suspect]
     Indication: DEPRESSION
  9. RIVOTRIL [Suspect]
     Indication: PSYCHOTIC DISORDER
  10. NOVALGINA [Concomitant]
     Indication: PYREXIA
     Route: 065
  11. PARACETAMOL [Concomitant]
     Indication: PAIN
     Route: 065
  12. CLOZAPINE [Concomitant]
     Route: 065
     Dates: start: 2002
  13. ZYPREXA [Concomitant]
     Route: 065
     Dates: start: 2002

REACTIONS (3)
  - Hypertensive crisis [Not Recovered/Not Resolved]
  - Drug ineffective [Unknown]
  - Medication error [Unknown]
